FAERS Safety Report 6620673-2 (Version None)
Quarter: 2010Q1

REPORT INFORMATION
  Report Type: 
  Country: None (occurrence: None)
  Receive Date: 20100304
  Receipt Date: 20100224
  Transmission Date: 20100710
  Serious: Yes (Death)
  Sender: FDA-Public Use
  Company Number: 1000012207

PATIENT
  Age: 40 Year
  Sex: Female

DRUGS (6)
  1. DILTIAZEM [Suspect]
  2. WARFARIN SODIUM [Suspect]
  3. HYDROCODONE BITARTRATE AND ACETAMINOPHEN [Suspect]
  4. METOCLOPRAMIDE [Suspect]
  5. MIRTAZAPINE [Suspect]
  6. TEMAZEPAM [Suspect]

REACTIONS (1)
  - DEATH [None]
